FAERS Safety Report 19278100 (Version 1)
Quarter: 2021Q2

REPORT INFORMATION
  Report Type: Spontaneous
  Country: US (occurrence: US)
  Receive Date: 20210519
  Receipt Date: 20210519
  Transmission Date: 20210717
  Serious: Yes (Other)
  Sender: FDA-Public Use
  Company Number: None

PATIENT
  Age: 59 Year
  Sex: Male
  Weight: 91.6 kg

DRUGS (1)
  1. CASIRIVIMAB (REGN10933) 1.2 G, IMDEVIMAB (REGN10987) 1.2 G IN SODIUM C [Suspect]
     Active Substance: CASIRIVIMAB\IMDEVIMAB
     Indication: COVID-19
     Route: 041
     Dates: start: 20210519, end: 20210519

REACTIONS (2)
  - Infusion related reaction [None]
  - Pyrexia [None]

NARRATIVE: CASE EVENT DATE: 20210519
